FAERS Safety Report 8460358-3 (Version None)
Quarter: 2012Q2

REPORT INFORMATION
  Report Type: 
  Country: None (occurrence: None)
  Receive Date: 20120323
  Receipt Date: 20111025
  Transmission Date: 20120825
  Serious: Yes (Hospitalization)
  Sender: FDA-Public Use
  Company Number: 163-21880-11110148

PATIENT
  Age: 76 Year
  Sex: Male
  Weight: 89.3586 kg

DRUGS (6)
  1. LASIX [Concomitant]
  2. HUMALOG [Concomitant]
  3. REVLIMID [Suspect]
     Indication: 5Q MINUS SYNDROME
     Dosage: 10 MG, 1 IN 1 D, PO
     Route: 048
     Dates: start: 20111001, end: 20111001
  4. PREDNISONE TAB [Concomitant]
  5. LEVEMIR [Concomitant]
  6. SIMVASTATIN [Concomitant]

REACTIONS (2)
  - PLATELET COUNT DECREASED [None]
  - EPISTAXIS [None]
